FAERS Safety Report 18903860 (Version 1)
Quarter: 2021Q1

REPORT INFORMATION
  Report Type: Spontaneous
  Country: US (occurrence: US)
  Receive Date: 20210217
  Receipt Date: 20210217
  Transmission Date: 20210420
  Serious: Yes (Hospitalization)
  Sender: FDA-Public Use
  Company Number: None

PATIENT
  Age: 75 Year
  Sex: Male
  Weight: 73.5 kg

DRUGS (2)
  1. CARBOPLATIN 0MG [Suspect]
     Active Substance: CARBOPLATIN
  2. ETOPOSIDE (VP?16) 0MG [Suspect]
     Active Substance: ETOPOSIDE

REACTIONS (6)
  - Chronic obstructive pulmonary disease [None]
  - Asthenia [None]
  - Platelet count decreased [None]
  - Haemoglobin decreased [None]
  - Fatigue [None]
  - Anaemia [None]

NARRATIVE: CASE EVENT DATE: 20190206
